FAERS Safety Report 4824227-X (Version None)
Quarter: 2005Q4

REPORT INFORMATION
  Report Type: 
  Country: None (occurrence: None)
  Receive Date: 20051108
  Receipt Date: 20051027
  Transmission Date: 20060501
  Serious: Yes (Other)
  Sender: FDA-Public Use
  Company Number: A-US2004-08267

PATIENT
  Age: 76 Year
  Sex: Female
  Weight: 77 kg

DRUGS (8)
  1. TRACLEER [Suspect]
     Indication: PULMONARY HYPERTENSION
     Dosage: 62.5 MG, BID, ORAL
     Route: 048
     Dates: start: 20041018, end: 20041114
  2. COUMADIN [Concomitant]
  3. LASIX [Concomitant]
  4. COZAAR [Concomitant]
  5. POTASSIUM CHLORIDE [Concomitant]
  6. AMBIEN [Concomitant]
  7. DARVOCET [Concomitant]
  8. PROZAC [Concomitant]

REACTIONS (8)
  - AGEUSIA [None]
  - ANOREXIA [None]
  - DIZZINESS [None]
  - DYSPEPSIA [None]
  - HEADACHE [None]
  - NAUSEA [None]
  - PAIN IN EXTREMITY [None]
  - PRURITUS [None]
